FAERS Safety Report 9099001 (Version 1)
Quarter: 2013Q1

REPORT INFORMATION
  Report Type: Spontaneous
  Country: DE (occurrence: DE)
  Receive Date: 20130214
  Receipt Date: 20130214
  Transmission Date: 20140127
  Serious: Yes (Death, Other)
  Sender: FDA-Public Use
  Company Number: DE-ELI_LILLY_AND_COMPANY-DE201302001625

PATIENT
  Age: 67 Year
  Sex: Female

DRUGS (3)
  1. FORSTEO [Suspect]
     Indication: OSTEOPOROSIS
     Dosage: UNK, QD
     Route: 058
     Dates: start: 20111004
  2. CORTISONE [Concomitant]
  3. CALCIUM [Concomitant]

REACTIONS (3)
  - Renal failure [Fatal]
  - Respiratory disorder [Fatal]
  - Localised infection [Fatal]
